FAERS Safety Report 20134367 (Version 1)
Quarter: 2021Q4

REPORT INFORMATION
  Report Type: Spontaneous
  Country: BG (occurrence: BG)
  Receive Date: 20211201
  Receipt Date: 20211201
  Transmission Date: 20220303
  Serious: Yes (Other)
  Sender: FDA-Public Use
  Company Number: BG-NOVARTISPH-NVSC2021BG271318

PATIENT
  Age: 23 Year
  Sex: Female
  Weight: 43 kg

DRUGS (2)
  1. CARBOPLATIN [Suspect]
     Active Substance: CARBOPLATIN
     Indication: Head and neck cancer
     Dosage: UNK
     Route: 065
     Dates: start: 20201001
  2. PACLITAXEL [Suspect]
     Active Substance: PACLITAXEL
     Indication: Head and neck cancer
     Dosage: UNK
     Route: 065
     Dates: start: 20201001

REACTIONS (1)
  - Malignant neoplasm progression [Unknown]
